FAERS Safety Report 15498975 (Version 2)
Quarter: 2018Q4

REPORT INFORMATION
  Report Type: Report from Study
  Country: CA (occurrence: CA)
  Receive Date: 20181015
  Receipt Date: 20181026
  Transmission Date: 20190205
  Serious: Yes (Hospitalization)
  Sender: FDA-Public Use
  Company Number: CA-JNJFOC-20180934510

PATIENT
  Age: 75 Year
  Sex: Female

DRUGS (1)
  1. DARZALEX [Suspect]
     Active Substance: DARATUMUMAB
     Indication: PLASMA CELL MYELOMA
     Route: 042
     Dates: start: 20180906, end: 20180926

REACTIONS (2)
  - Hospitalisation [Unknown]
  - Cellulitis [Unknown]

NARRATIVE: CASE EVENT DATE: 20180926
